FAERS Safety Report 15848726 (Version 4)
Quarter: 2020Q2

REPORT INFORMATION
  Report Type: Report from Study
  Country: BR (occurrence: BR)
  Receive Date: 20190121
  Receipt Date: 20200615
  Transmission Date: 20200713
  Serious: Yes (Hospitalization, Other)
  Sender: FDA-Public Use
  Company Number: BR-JNJFOC-20190121466

PATIENT
  Age: 62 Year
  Sex: Male

DRUGS (5)
  1. ARAVA [Concomitant]
     Active Substance: LEFLUNOMIDE
     Route: 065
  2. SIMPONI [Suspect]
     Active Substance: GOLIMUMAB
     Indication: RHEUMATOID ARTHRITIS
     Route: 058
     Dates: start: 20140826
  3. SIMPONI [Suspect]
     Active Substance: GOLIMUMAB
     Route: 058
     Dates: start: 20141119
  4. METHOTREXATE. [Concomitant]
     Active Substance: METHOTREXATE
     Route: 065
  5. SIMPONI [Suspect]
     Active Substance: GOLIMUMAB
     Route: 058
     Dates: start: 2016, end: 20181220

REACTIONS (5)
  - Arthralgia [Unknown]
  - Hepatic cirrhosis [Recovered/Resolved]
  - Osteoarthritis [Not Recovered/Not Resolved]
  - Weight decreased [Unknown]
  - Diverticulitis [Recovering/Resolving]

NARRATIVE: CASE EVENT DATE: 201901
